FAERS Safety Report 8588537-5 (Version None)
Quarter: 2012Q3

REPORT INFORMATION
  Report Type: 
  Country: None (occurrence: None)
  Receive Date: 20120813
  Receipt Date: 20120730
  Transmission Date: 20120928
  Serious: No
  Sender: FDA-Public Use
  Company Number: US-JNJFOC-20120613589

PATIENT
  Sex: Male
  Weight: 109.77 kg

DRUGS (8)
  1. LISINOPRIL [Concomitant]
     Indication: HYPERTENSION
     Route: 048
     Dates: start: 20100101
  2. HYDROCHLOROTHIAZIDE [Concomitant]
     Indication: HYPERTENSION
     Route: 048
     Dates: start: 20100101
  3. BUSPAR [Concomitant]
     Indication: BIPOLAR DISORDER
     Route: 048
     Dates: start: 20120401
  4. ROBAXIN [Concomitant]
     Indication: MUSCLE TWITCHING
     Route: 048
     Dates: start: 20120301
  5. CYMBALTA [Concomitant]
     Indication: BIPOLAR DISORDER
     Dosage: 30 MG AND 90 MG
     Route: 048
     Dates: start: 20120401
  6. PAXIL [Concomitant]
     Indication: BIPOLAR DISORDER
     Route: 048
     Dates: start: 20120401
  7. FENTANYL-100 [Suspect]
     Indication: OSTEONECROSIS
     Route: 062
     Dates: start: 20120501
  8. AMLODIPINE [Concomitant]
     Indication: HYPERTENSION
     Route: 048
     Dates: start: 20100101

REACTIONS (2)
  - PRODUCT QUALITY ISSUE [None]
  - WRONG TECHNIQUE IN DRUG USAGE PROCESS [None]
